FAERS Safety Report 23992571 (Version 1)
Quarter: 2024Q2

REPORT INFORMATION
  Report Type: Spontaneous
  Country: US (occurrence: US)
  Receive Date: 20240620
  Receipt Date: 20240620
  Transmission Date: 20240715
  Serious: No
  Sender: FDA-Public Use
  Company Number: US-PADAGIS-2024PAD01020

PATIENT

DRUGS (1)
  1. ESTRADIOL VAGINAL [Suspect]
     Active Substance: ESTRADIOL
     Indication: Product used for unknown indication
     Dosage: LESS THAN A GRAM, 3 TIMES A WEEK
     Route: 065

REACTIONS (3)
  - Underdose [Unknown]
  - Product prescribing error [Unknown]
  - Drug delivery system issue [Unknown]
